FAERS Safety Report 9307432 (Version 1)
Quarter: 2013Q2

REPORT INFORMATION
  Report Type: Spontaneous
  Country: CN (occurrence: CN)
  Receive Date: 20130524
  Receipt Date: 20130524
  Transmission Date: 20140414
  Serious: Yes (Death)
  Sender: FDA-Public Use
  Company Number: CN-JNJFOC-20130510312

PATIENT
  Age: 27 Year
  Sex: Female

DRUGS (1)
  1. RISPERIDONE [Suspect]
     Indication: BIPOLAR DISORDER
     Route: 048
     Dates: start: 20111129, end: 20111129

REACTIONS (3)
  - Hepatitis [Fatal]
  - Hepatic encephalopathy [Fatal]
  - Bipolar I disorder [Unknown]
